FAERS Safety Report 9529629 (Version 2)
Quarter: 2013Q4

REPORT INFORMATION
  Report Type: Spontaneous
  Country: US (occurrence: US)
  Receive Date: 20130917
  Receipt Date: 20131010
  Transmission Date: 20140711
  Serious: Yes (Other)
  Sender: FDA-Public Use
  Company Number: US-B.I. PHARMACEUTICALS,INC./RIDGEFIELD-2013-BI-28464BP

PATIENT
  Age: 71 Year
  Sex: Female
  Weight: 75 kg

DRUGS (16)
  1. SPIRIVA [Suspect]
     Indication: CHRONIC OBSTRUCTIVE PULMONARY DISEASE
     Dosage: 18 MCG
     Route: 055
     Dates: start: 20130905, end: 20130905
  2. DULERA 200-5 MCG [Concomitant]
     Dosage: 4 PUF
  3. DUONEB [Concomitant]
     Indication: CHRONIC OBSTRUCTIVE PULMONARY DISEASE
     Dosage: DOSE PER APPLICATION 0.5-2.5(3) MG/ML SOLUTION,
  4. DUONEB [Concomitant]
     Dosage: 2 ANZ
  5. NEBULIZER COMPRESSER MISC [Concomitant]
  6. PROAIR HFA [Concomitant]
     Indication: COUGH
  7. PROAIR HFA [Concomitant]
     Indication: WHEEZING
  8. HYDROXYZINE [Concomitant]
     Dosage: DAILY DOSE: 1-2 TABLETS ONCE A DAY AT NIGHT
  9. COUMADIN [Concomitant]
  10. SIMVASTATIN [Concomitant]
     Dosage: 80 MG
  11. SPIRONOLACTONE [Concomitant]
     Dosage: 25 MG
     Route: 048
  12. PRILOSEC [Concomitant]
     Dosage: 1 ANZ
  13. GABAPENTIN [Concomitant]
     Dosage: 1 ANZ
  14. LASIX [Concomitant]
  15. ATROVENT HFA [Concomitant]
     Dosage: 6 PUF
  16. FUROSEMIDE [Concomitant]
     Indication: FLUID RETENTION
     Dosage: 40 MG
     Route: 048

REACTIONS (6)
  - Convulsion [Recovered/Resolved]
  - Asthma [Recovered/Resolved]
  - Asthenia [Not Recovered/Not Resolved]
  - Dyspnoea [Not Recovered/Not Resolved]
  - Abasia [Unknown]
  - Muscle spasms [Unknown]
